FAERS Safety Report 9255503 (Version 1)
Quarter: 2013Q1

REPORT INFORMATION
  Report Type: Spontaneous
  Country: US (occurrence: None)
  Receive Date: 20121210
  Receipt Date: 20121210
  Transmission Date: 20140127
  Serious: No
  Sender: FDA-Public Use
  Company Number: US-006814

PATIENT
  Age: 39 Year
  Sex: Female
  Weight: 54.89 kg

DRUGS (1)
  1. MENOPUR (NOT SPECIFIED) [Suspect]
     Indication: INFERTILITY
     Dosage: 75 IU TO 450 IU DAILY SUBCUTANEOUS
     Route: 058
     Dates: start: 201109, end: 20111108

REACTIONS (3)
  - Emotional disorder [None]
  - Crying [None]
  - Weight increased [None]
